FAERS Safety Report 9783023 (Version 1)
Quarter: 2013Q4

REPORT INFORMATION
  Report Type: Report from Study
  Country: US (occurrence: US)
  Receive Date: 20131226
  Receipt Date: 20131226
  Transmission Date: 20140711
  Serious: Yes (Death, Hospitalization)
  Sender: FDA-Public Use
  Company Number: US-ASTELLAS-2013US013386

PATIENT
  Sex: 0

DRUGS (1)
  1. ERLOTINIB TABLET [Suspect]
     Indication: NON-SMALL CELL LUNG CANCER
     Dosage: 150 MG, UNKNOWN/D
     Route: 048
     Dates: start: 20091203, end: 20100125

REACTIONS (6)
  - Inappropriate schedule of drug administration [Unknown]
  - Urine output decreased [Unknown]
  - Confusional state [Unknown]
  - Failure to thrive [Unknown]
  - Asthenia [Unknown]
  - Malignant neoplasm progression [Fatal]
